FAERS Safety Report 4567025-7 (Version None)
Quarter: 2005Q1

REPORT INFORMATION
  Report Type: 
  Country: None (occurrence: None)
  Receive Date: 20050201
  Receipt Date: 20040712
  Transmission Date: 20050727
  Serious: No
  Sender: FDA-Public Use
  Company Number: US-BRISTOL-MYERS SQUIBB COMPANY-12638870

PATIENT
  Age: 41 Year
  Sex: Female

DRUGS (2)
  1. STADOL [Suspect]
     Indication: MIGRAINE
     Route: 045
  2. DURAGESIC [Suspect]
     Indication: PAIN
     Dosage: ^1 IN 48 HOUR^; ^INITIATED FENTANYL-TTS 75 UG/HR, 1 IN 24 HOURS, IN FEB-2004^
     Route: 062
     Dates: start: 20040201

REACTIONS (3)
  - DYSPNOEA [None]
  - FEELING ABNORMAL [None]
  - MYALGIA [None]
